FAERS Safety Report 4584113-X (Version None)
Quarter: 2005Q1

REPORT INFORMATION
  Report Type: 
  Country: None (occurrence: None)
  Receive Date: 20050211
  Receipt Date: 20050128
  Transmission Date: 20050727
  Serious: No
  Sender: FDA-Public Use
  Company Number: 10091

PATIENT
  Age: 33 Year
  Sex: Male

DRUGS (1)
  1. AMIODARONE [Suspect]
     Indication: ATRIAL FIBRILLATION
     Dosage: 200 MG , PO
     Route: 048
     Dates: start: 20011113, end: 20040801

REACTIONS (2)
  - HYPERTHYROIDISM [None]
  - THYROIDITIS [None]
